FAERS Safety Report 19511135 (Version 1)
Quarter: 2021Q3

REPORT INFORMATION
  Report Type: Spontaneous
  Country: US (occurrence: US)
  Receive Date: 20210708
  Receipt Date: 20210708
  Transmission Date: 20211014
  Serious: Yes (Hospitalization)
  Sender: FDA-Public Use
  Company Number: None

PATIENT
  Age: 57 Year
  Sex: Female

DRUGS (26)
  1. SILDENAFIL. [Concomitant]
     Active Substance: SILDENAFIL
  2. SENNA [Concomitant]
     Active Substance: SENNA LEAF\SENNOSIDES\SENNOSIDES A AND B
  3. DEXAMETHASONE. [Concomitant]
     Active Substance: DEXAMETHASONE
  4. OPSUMIT [Suspect]
     Active Substance: MACITENTAN
     Indication: PULMONARY ARTERIAL HYPERTENSION
     Route: 048
     Dates: start: 20170301
  5. OPSUMIT [Suspect]
     Active Substance: MACITENTAN
     Indication: HERITABLE PULMONARY ARTERIAL HYPERTENSION
     Route: 048
     Dates: start: 20170301
  6. FAMOTIDINE. [Concomitant]
     Active Substance: FAMOTIDINE
  7. TRIAMCINOLONE TOP OINT [Concomitant]
  8. LOSARTAN. [Concomitant]
     Active Substance: LOSARTAN
  9. SPIRIVA RESPIMAT [Concomitant]
     Active Substance: TIOTROPIUM BROMIDE
  10. LIDOCAINE PATCH [Concomitant]
     Active Substance: LIDOCAINE
  11. MONTELUKAST [Concomitant]
     Active Substance: MONTELUKAST SODIUM
  12. TRAZODONE [Concomitant]
     Active Substance: TRAZODONE HYDROCHLORIDE
  13. ALBUTEROL HFA [Concomitant]
     Active Substance: ALBUTEROL SULFATE
  14. CETIRIZINE [Concomitant]
     Active Substance: CETIRIZINE HYDROCHLORIDE
  15. FUROSEMIDE. [Concomitant]
     Active Substance: FUROSEMIDE
  16. BENZONATATE. [Concomitant]
     Active Substance: BENZONATATE
  17. NORCO [Concomitant]
     Active Substance: ACETAMINOPHEN\HYDROCODONE BITARTRATE
  18. COLACE [Concomitant]
     Active Substance: DOCUSATE SODIUM
  19. COLCHICINE. [Concomitant]
     Active Substance: COLCHICINE
  20. ALBUTEROL INHL NEB SOLN [Concomitant]
     Active Substance: ALBUTEROL
  21. CYCLOBENZAPRINE. [Concomitant]
     Active Substance: CYCLOBENZAPRINE
  22. TYLENOL [Concomitant]
     Active Substance: ACETAMINOPHEN
  23. GABAPENTIN. [Concomitant]
     Active Substance: GABAPENTIN
  24. ADVAIR HFA [Concomitant]
     Active Substance: FLUTICASONE PROPIONATE\SALMETEROL XINAFOATE
  25. DIGOXIN. [Concomitant]
     Active Substance: DIGOXIN
  26. OMEPRAZOLE. [Concomitant]
     Active Substance: OMEPRAZOLE

REACTIONS (5)
  - Pain [None]
  - Spinal fracture [None]
  - Spinal cord compression [None]
  - Metastases to spine [None]
  - Muscular weakness [None]

NARRATIVE: CASE EVENT DATE: 20210628
